FAERS Safety Report 10542015 (Version 3)
Quarter: 2014Q4

REPORT INFORMATION
  Report Type: Spontaneous
  Country: US (occurrence: US)
  Receive Date: 20141024
  Receipt Date: 20141124
  Transmission Date: 20150529
  Serious: Yes (Other)
  Sender: FDA-Public Use
  Company Number: US-PFIZER INC-2014292185

PATIENT
  Age: 75 Year
  Sex: Female
  Weight: 51 kg

DRUGS (5)
  1. ELIQUIS [Concomitant]
     Active Substance: APIXABAN
     Indication: ATRIAL FIBRILLATION
     Dosage: 5 MG, 2X/DAY
  2. VITAMIN D [Concomitant]
     Active Substance: CHOLECALCIFEROL
     Dosage: UNK
  3. CALCIUM [Concomitant]
     Active Substance: CALCIUM
     Dosage: 600 MG, UNK
  4. CHANTIX [Suspect]
     Active Substance: VARENICLINE TARTRATE
     Indication: SMOKING CESSATION THERAPY
     Dosage: ONE PILL IN THE MORNING AND ONE IN THE EVENING
  5. CENTRUM SILVER [Concomitant]
     Active Substance: VITAMINS
     Dosage: UNK, 1X/DAY

REACTIONS (4)
  - Nausea [Recovered/Resolved]
  - Peripheral vascular disorder [Unknown]
  - Abdominal discomfort [Recovered/Resolved]
  - Abnormal dreams [Recovered/Resolved]

NARRATIVE: CASE EVENT DATE: 20141016
